FAERS Safety Report 9649376 (Version 1)
Quarter: 2013Q4

REPORT INFORMATION
  Report Type: Spontaneous
  Country: GB (occurrence: GB)
  Receive Date: 20131028
  Receipt Date: 20131028
  Transmission Date: 20140711
  Serious: Yes (Life-Threatening)
  Sender: FDA-Public Use
  Company Number: GB-BRISTOL-MYERS SQUIBB COMPANY-19600089

PATIENT
  Age: 35 Year
  Sex: Female
  Weight: 94 kg

DRUGS (9)
  1. ABATACEPT [Suspect]
     Indication: RHEUMATOID ARTHRITIS
     Dosage: 1 DF=750 NO UNITS
     Route: 042
     Dates: start: 20121119, end: 20130729
  2. PARACETAMOL [Concomitant]
  3. ESOMEPRAZOLE [Concomitant]
  4. CO-DYDRAMOL [Concomitant]
  5. DEXAMETHASONE [Concomitant]
  6. CALCICHEW D3 [Concomitant]
  7. CALCICHEW D3 [Concomitant]
     Dosage: POWDER FORM
  8. AMITRIPTYLINE [Concomitant]
  9. IBUPROFEN [Concomitant]

REACTIONS (3)
  - T-cell lymphoma [Not Recovered/Not Resolved]
  - Abdominal distension [Not Recovered/Not Resolved]
  - Swelling face [Not Recovered/Not Resolved]
